FAERS Safety Report 17542509 (Version 1)
Quarter: 2020Q1

REPORT INFORMATION
  Report Type: Spontaneous
  Country: DE (occurrence: DE)
  Receive Date: 20200314
  Receipt Date: 20200314
  Transmission Date: 20200409
  Serious: Yes (Other)
  Sender: FDA-Public Use
  Company Number: DE-CIRCASSIA PHARMACEUTICALS INC-2020DE001478

PATIENT
  Age: 72 Year
  Sex: Female

DRUGS (1)
  1. ACLIDINIUM + FORMOTEROL [Suspect]
     Active Substance: ACLIDINIUM BROMIDE\FORMOTEROL FUMARATE
     Indication: CHRONIC OBSTRUCTIVE PULMONARY DISEASE
     Dosage: UNK
     Route: 055
     Dates: start: 20200210, end: 20200214

REACTIONS (12)
  - Hypersensitivity [Unknown]
  - Muscle spasms [Unknown]
  - Rash [Unknown]
  - Tremor [Unknown]
  - Arthralgia [Not Recovered/Not Resolved]
  - Intentional product misuse [Unknown]
  - Cough [Unknown]
  - Dizziness [Unknown]
  - Dyspnoea [Unknown]
  - Headache [Unknown]
  - Speech disorder [Unknown]
  - Rash papular [Unknown]

NARRATIVE: CASE EVENT DATE: 20200211
